FAERS Safety Report 22589073 (Version 1)
Quarter: 2023Q2

REPORT INFORMATION
  Report Type: Report from Study
  Country: US (occurrence: US)
  Receive Date: 20230612
  Receipt Date: 20230612
  Transmission Date: 20230721
  Serious: No
  Sender: FDA-Public Use
  Company Number: US-002147023-NVSC2023US131278

PATIENT
  Sex: Male
  Weight: 97.52 kg

DRUGS (5)
  1. COSENTYX [Suspect]
     Active Substance: SECUKINUMAB
     Indication: Psoriasis
     Route: 065
  2. CLOBETASOL [Suspect]
     Active Substance: CLOBETASOL
     Indication: Psoriasis
     Dosage: UNK
     Route: 065
     Dates: start: 20200317, end: 20210209
  3. TRIAMCINOLONE [Suspect]
     Active Substance: TRIAMCINOLONE
     Indication: Psoriasis
     Route: 065
  4. HYDROCORTISONE [Suspect]
     Active Substance: HYDROCORTISONE
     Indication: Psoriasis
     Route: 065
  5. HYDROXYZINE [Suspect]
     Active Substance: HYDROXYZINE HYDROCHLORIDE
     Indication: Psoriasis
     Route: 065

REACTIONS (15)
  - Psoriasis [Unknown]
  - Skin exfoliation [Unknown]
  - Pruritus [Unknown]
  - Discomfort [Unknown]
  - Emotional distress [Unknown]
  - Drug ineffective [Unknown]
  - Drug intolerance [Unknown]
  - Skin plaque [Unknown]
  - Skin haemorrhage [Unknown]
  - Macule [Unknown]
  - Papule [Unknown]
  - Dry skin [Unknown]
  - Skin hyperpigmentation [Unknown]
  - Erythema [Unknown]
  - Fibrous histiocytoma [Unknown]
